FAERS Safety Report 5418112-2 (Version None)
Quarter: 2007Q3

REPORT INFORMATION
  Report Type: 
  Country: None (occurrence: None)
  Receive Date: 20070817
  Receipt Date: 20070813
  Transmission Date: 20080115
  Serious: Yes (Hospitalization)
  Sender: FDA-Public Use
  Company Number: FR-ELI_LILLY_AND_COMPANY-FR200708002479

PATIENT
  Age: 36 Year
  Sex: Female

DRUGS (14)
  1. XIGRIS [Suspect]
     Indication: MULTI-ORGAN FAILURE
     Dosage: 20 MG, UNK
     Route: 042
     Dates: start: 20060113, end: 20060114
  2. THERALENE [Concomitant]
  3. PROZAC [Concomitant]
  4. TRANXENE [Concomitant]
  5. TIAPRIDAL [Concomitant]
  6. LOVENOX [Concomitant]
     Dosage: 4000 IU, UNK
     Route: 042
     Dates: start: 20060113, end: 20060113
  7. OMEPRAZOLE [Concomitant]
     Dosage: 40 MG, UNK
     Route: 042
     Dates: start: 20060113, end: 20060123
  8. NEXIUM [Concomitant]
     Dates: start: 20060101
  9. NORADRENALINE [Concomitant]
  10. DOBUTAMINE HCL [Concomitant]
  11. ADRENALINE [Concomitant]
  12. AUGMENTIN                               /SCH/ [Concomitant]
     Dates: start: 20060112, end: 20060120
  13. TAZOCILLINE [Concomitant]
     Dates: start: 20060101, end: 20060129
  14. CIPROFLOXACIN HCL [Concomitant]
     Dates: start: 20060101, end: 20060129

REACTIONS (3)
  - ALOPECIA [None]
  - CARDIAC FAILURE [None]
  - THROMBOCYTOPENIA [None]
